FAERS Safety Report 17253635 (Version 1)
Quarter: 2020Q1

REPORT INFORMATION
  Report Type: Report from Study
  Country: US (occurrence: US)
  Receive Date: 20200109
  Receipt Date: 20200109
  Transmission Date: 20200409
  Serious: Yes (Hospitalization)
  Sender: FDA-Public Use
  Company Number: US-JNJFOC-20200105329

PATIENT
  Sex: Male

DRUGS (5)
  1. MINIPRESS [Concomitant]
     Active Substance: PRAZOSIN HYDROCHLORIDE
  2. BELSOMRA [Concomitant]
     Active Substance: SUVOREXANT
  3. WELLBUTRIN [Concomitant]
     Active Substance: BUPROPION HYDROCHLORIDE
  4. SPRAVATO [Suspect]
     Active Substance: ESKETAMINE
     Indication: DEPRESSION
  5. ESKALITH [Concomitant]
     Active Substance: LITHIUM CARBONATE

REACTIONS (1)
  - Hospitalisation [Unknown]
